FAERS Safety Report 7933474-X (Version None)
Quarter: 2011Q4

REPORT INFORMATION
  Report Type: 
  Country: None (occurrence: None)
  Receive Date: 20111122
  Receipt Date: 20111114
  Transmission Date: 20120403
  Serious: Yes (Hospitalization)
  Sender: FDA-Public Use
  Company Number: US-BAYER-201035563NA

PATIENT
  Age: 31 Year
  Sex: Female
  Weight: 72.562 kg

DRUGS (5)
  1. LIPITOR [Concomitant]
  2. ZEGERID [Concomitant]
  3. LOPID [Concomitant]
  4. YAZ [Suspect]
     Indication: CONTRACEPTION
     Dosage: UNK
     Route: 048
     Dates: start: 20071116, end: 20080606
  5. YAZ [Suspect]
     Indication: MENSTRUATION IRREGULAR

REACTIONS (2)
  - ABDOMINAL PAIN [None]
  - PANCREATITIS [None]
